FAERS Safety Report 15354486 (Version 3)
Quarter: 2019Q1

REPORT INFORMATION
  Report Type: Report from Study
  Country: US (occurrence: US)
  Receive Date: 20180906
  Receipt Date: 20190319
  Transmission Date: 20190417
  Serious: Yes (Other)
  Sender: FDA-Public Use
  Company Number: US-BIOGEN-2018BI00628366

PATIENT
  Sex: Male

DRUGS (1)
  1. TECFIDERA [Suspect]
     Active Substance: DIMETHYL FUMARATE
     Indication: MULTIPLE SCLEROSIS
     Dosage: MAINTENANCE DOSE
     Route: 050
     Dates: start: 20180406

REACTIONS (9)
  - Dizziness [Unknown]
  - Eye pain [Unknown]
  - Head injury [Unknown]
  - Spinal column stenosis [Unknown]
  - Syncope [Unknown]
  - Insomnia [Unknown]
  - Diabetes mellitus [Unknown]
  - Migraine [Unknown]
  - Respiratory disorder [Unknown]

NARRATIVE: CASE EVENT DATE: 2019
